FAERS Safety Report 18031305 (Version 1)
Quarter: 2020Q3

REPORT INFORMATION
  Report Type: Spontaneous
  Country: US (occurrence: US)
  Receive Date: 20200715
  Receipt Date: 20200715
  Transmission Date: 20201103
  Serious: No
  Sender: FDA-Public Use
  Company Number: None

PATIENT
  Age: 47 Year
  Sex: Female

DRUGS (1)
  1. REYVOW [Suspect]
     Active Substance: LASMIDITAN
     Indication: MIGRAINE
     Route: 048
     Dates: start: 20200625, end: 20200625

REACTIONS (4)
  - Dizziness [None]
  - Dyspnoea [None]
  - Chest discomfort [None]
  - Tremor [None]

NARRATIVE: CASE EVENT DATE: 20200625
